FAERS Safety Report 5967577-6 (Version None)
Quarter: 2008Q4

REPORT INFORMATION
  Report Type: 
  Country: None (occurrence: None)
  Receive Date: 20081125
  Receipt Date: 20081113
  Transmission Date: 20090506
  Serious: Yes (Hospitalization)
  Sender: FDA-Public Use
  Company Number: KR-PFIZER INC-2008098882

PATIENT
  Sex: Male
  Weight: 52 kg

DRUGS (2)
  1. VFEND [Suspect]
     Indication: ASPERGILLOSIS
     Route: 042
     Dates: start: 20080310, end: 20080310
  2. VFEND [Suspect]
     Route: 042
     Dates: start: 20080311, end: 20080330

REACTIONS (1)
  - BRONCHOPULMONARY ASPERGILLOSIS [None]
